FAERS Safety Report 24379461 (Version 1)
Quarter: 2024Q3

REPORT INFORMATION
  Report Type: Spontaneous
  Country: GB (occurrence: GB)
  Receive Date: 20240930
  Receipt Date: 20240930
  Transmission Date: 20241017
  Serious: Yes (Other)
  Sender: AMGEN
  Company Number: GB-AMGEN-GBRSP2024189127

PATIENT
  Age: 17 Year
  Sex: Female

DRUGS (10)
  1. FILGRASTIM [Suspect]
     Active Substance: FILGRASTIM
     Indication: Prophylaxis
     Dosage: 5 MICROGRAM/KILOGRAM
     Route: 065
  2. FLUDARABINE [Concomitant]
     Active Substance: FLUDARABINE PHOSPHATE
     Dosage: 150 MILLIGRAM/SQ. METER
  3. CYCLOPHOSPHAMIDE [Concomitant]
     Active Substance: CYCLOPHOSPHAMIDE
     Dosage: 120 MILLIGRAM/KILOGRAM
  4. ALEMTUZUMAB [Concomitant]
     Active Substance: ALEMTUZUMAB
     Dosage: 1 MILLIGRAM/KILOGRAM
  5. CYCLOSPORINE [Concomitant]
     Active Substance: CYCLOSPORINE
  6. MYCOPHENOLATE MOFETIL [Concomitant]
     Active Substance: MYCOPHENOLATE MOFETIL
  7. RITUXIMAB [Concomitant]
     Active Substance: RITUXIMAB
     Dosage: 375 MILLIGRAM (ON DAY 118)
  8. RITUXIMAB [Concomitant]
     Active Substance: RITUXIMAB
     Dosage: 375 MILLIGRAM (ON DAY 125 )
  9. RITUXIMAB [Concomitant]
     Active Substance: RITUXIMAB
     Dosage: 375 MILLIGRAM (ON DAY 132)
  10. GRAFALON [Concomitant]
     Active Substance: LAPINE T-LYMPHOCYTE IMMUNE GLOBULIN
     Dosage: 5 MILLIGRAM/KILOGRAM

REACTIONS (4)
  - Blood stem cell transplant failure [Unknown]
  - Transplant dysfunction [Recovered/Resolved]
  - Platelet engraftment failure [Recovering/Resolving]
  - Therapy non-responder [Unknown]
